FAERS Safety Report 4511218-1 (Version None)
Quarter: 2004Q4

REPORT INFORMATION
  Report Type: 
  Country: None (occurrence: None)
  Receive Date: 20041122
  Receipt Date: 20041122
  Transmission Date: 20050328
  Serious: Yes (Other)
  Sender: FDA-Public Use
  Company Number: None

PATIENT
  Age: 55 Year
  Sex: Female
  Weight: 117.9352 kg

DRUGS (1)
  1. ZONEGRAN [Suspect]
     Indication: SIMPLE PARTIAL SEIZURES
     Dosage: 1 PILL IN PM
     Dates: start: 20041029, end: 20041103

REACTIONS (2)
  - AGITATION [None]
  - HOMICIDAL IDEATION [None]
